FAERS Safety Report 6768810-3 (Version None)
Quarter: 2010Q2

REPORT INFORMATION
  Report Type: 
  Country: None (occurrence: None)
  Receive Date: 20100611
  Receipt Date: 20100601
  Transmission Date: 20101027
  Serious: Yes (Hospitalization, Other)
  Sender: FDA-Public Use
  Company Number: 2009S1005999

PATIENT
  Age: 83 Year
  Sex: Female

DRUGS (12)
  1. PHOSPHOSODA FLAVOR SPECIFIED [Suspect]
     Indication: COLONOSCOPY
     Dosage: 90 ML; TOTAL; PO
     Route: 048
     Dates: start: 20041012, end: 20041012
  2. ARANESP [Concomitant]
  3. ACTONEL [Concomitant]
  4. DIOVAN /01319601/ [Concomitant]
  5. NORVASC [Concomitant]
  6. HYDROCHLOROTHIAZIDE [Concomitant]
  7. CALCIUM CARBONATE [Concomitant]
  8. MAGNESIUM [Concomitant]
  9. ZOCOR [Concomitant]
  10. MULTI-VITAMINS [Concomitant]
  11. BEXTRA /01400702/ [Concomitant]
  12. ULTRACET [Concomitant]

REACTIONS (3)
  - ACUTE PHOSPHATE NEPHROPATHY [None]
  - ANAEMIA [None]
  - RENAL FAILURE CHRONIC [None]
